FAERS Safety Report 7978095-8 (Version None)
Quarter: 2011Q4

REPORT INFORMATION
  Report Type: 
  Country: None (occurrence: None)
  Receive Date: 20111212
  Receipt Date: 20111212
  Transmission Date: 20120403
  Serious: Yes (Other)
  Sender: FDA-Public Use
  Company Number: None

PATIENT
  Sex: Female

DRUGS (1)
  1. ENBREL [Suspect]
     Dosage: 50MG ONCE WEEKLY SUBCUTANEOUS
     Route: 058
     Dates: start: 20111024, end: 20111207

REACTIONS (3)
  - OLIGOMENORRHOEA [None]
  - MENORRHAGIA [None]
  - COAGULATION TIME PROLONGED [None]
